FAERS Safety Report 7114633-5 (Version None)
Quarter: 2010Q4

REPORT INFORMATION
  Report Type: 
  Country: None (occurrence: None)
  Receive Date: 20101121
  Receipt Date: 20101117
  Transmission Date: 20110411
  Serious: Yes (Other)
  Sender: FDA-Public Use
  Company Number: GB-BRISTOL-MYERS SQUIBB COMPANY-15390545

PATIENT
  Sex: Male
  Weight: 70 kg

DRUGS (5)
  1. PRAVASTATIN SODIUM [Interacting]
     Indication: TRIGEMINAL NEURALGIA
     Dosage: START PERIOD:1DAY
     Dates: start: 20101022, end: 20101103
  2. PRAVASTATIN SODIUM [Interacting]
     Indication: ANGINA PECTORIS
     Dosage: START PERIOD:1DAY
     Dates: start: 20101022, end: 20101103
  3. ATENOLOL [Suspect]
     Indication: ANGINA PECTORIS
     Dosage: 2MONTHS
  4. ASPIRIN [Suspect]
     Indication: ANGINA PECTORIS
     Dosage: 2MONTHS
  5. PREGABALIN [Interacting]
     Indication: TRIGEMINAL NEURALGIA
     Dosage: 2MONTHS AGO

REACTIONS (3)
  - CONFUSIONAL STATE [None]
  - DRUG INTERACTION [None]
  - SOMNOLENCE [None]
